FAERS Safety Report 25711517 (Version 1)
Quarter: 2025Q3

REPORT INFORMATION
  Report Type: Spontaneous
  Country: US (occurrence: US)
  Receive Date: 20250821
  Receipt Date: 20250821
  Transmission Date: 20251021
  Serious: No
  Sender: BAUSCH AND LOMB
  Company Number: US-BAUSCH-BH-2025-016297

PATIENT
  Sex: Female

DRUGS (1)
  1. RETIN-A [Suspect]
     Active Substance: TRETINOIN
     Indication: Product used for unknown indication
     Route: 065
     Dates: start: 20250424, end: 202507

REACTIONS (1)
  - Skin discolouration [Unknown]

NARRATIVE: CASE EVENT DATE: 20250101
